FAERS Safety Report 10595086 (Version 1)
Quarter: 2014Q4

REPORT INFORMATION
  Report Type: Spontaneous
  Country: US (occurrence: None)
  Receive Date: 20141119
  Receipt Date: 20141119
  Transmission Date: 20150529
  Serious: Yes (Hospitalization)
  Sender: FDA-Public Use
  Company Number: None

PATIENT
  Age: 52 Year
  Sex: Female
  Weight: 92.7 kg

DRUGS (2)
  1. DOXORUBICIN HYDROCHLORIDE. [Suspect]
     Active Substance: DOXORUBICIN HYDROCHLORIDE
     Dosage: THIS WAS THE PATIEN^TS LAST DOSE OF AC; TAXO TREATMENT BEGAN ON 5/13/2010
     Dates: end: 20100422
  2. CYCLOPHOSPHAMIDE. [Suspect]
     Active Substance: CYCLOPHOSPHAMIDE
     Dosage: THIS WAS CYCLE#4 OF PATIEN^S AC; PATIENT INITIATED TAXOL TREATMENT 5/13/2010
     Dates: end: 20100422

REACTIONS (2)
  - Ejection fraction decreased [None]
  - Fatigue [None]

NARRATIVE: CASE EVENT DATE: 20100512
